FAERS Safety Report 7782992-6 (Version None)
Quarter: 2011Q3

REPORT INFORMATION
  Report Type: 
  Country: None (occurrence: None)
  Receive Date: 20110926
  Receipt Date: 20110919
  Transmission Date: 20111222
  Serious: Yes (Death)
  Sender: FDA-Public Use
  Company Number: DSA_47690_2011

PATIENT
  Sex: Female

DRUGS (1)
  1. XENAZINE [Suspect]
     Indication: HUNTINGTON'S DISEASE
     Dosage: 25 MG EACH MORNING, 1/2 TAB AT NOON, AND 1/2 TAB EACH EVENI NG ORAL
     Route: 048
     Dates: start: 20100201

REACTIONS (1)
  - DEATH [None]
